FAERS Safety Report 13534235 (Version 1)
Quarter: 2017Q2

REPORT INFORMATION
  Report Type: Spontaneous
  Country: US (occurrence: US)
  Receive Date: 20170510
  Receipt Date: 20170510
  Transmission Date: 20170830
  Serious: No
  Sender: FDA-Public Use
  Company Number: US-SPEAR PHARMACEUTICALS-2020566

PATIENT
  Age: 73 Year
  Sex: Male
  Weight: 84.09 kg

DRUGS (1)
  1. FLUOROURACIL. [Suspect]
     Active Substance: FLUOROURACIL
     Indication: ACTINIC KERATOSIS
     Route: 061
     Dates: start: 20160521, end: 20160606

REACTIONS (15)
  - Photophobia [None]
  - Insomnia [None]
  - Stomatitis [None]
  - Ocular hyperaemia [None]
  - Diarrhoea [None]
  - Blister [None]
  - Nausea [None]
  - Lacrimation increased [None]
  - Burns second degree [None]
  - Pain [None]
  - Unevaluable event [Recovered/Resolved]
  - Swelling [None]
  - Vomiting [None]
  - Decreased appetite [None]
  - Dysgeusia [None]

NARRATIVE: CASE EVENT DATE: 20160601
